FAERS Safety Report 8430366-7 (Version None)
Quarter: 2012Q2

REPORT INFORMATION
  Report Type: 
  Country: None (occurrence: None)
  Receive Date: 20120323
  Receipt Date: 20110602
  Transmission Date: 20120825
  Serious: Yes (Hospitalization)
  Sender: FDA-Public Use
  Company Number: 163-21880-11060767

PATIENT
  Age: 71 Year
  Sex: Female

DRUGS (3)
  1. REVLIMID [Suspect]
     Indication: MULTIPLE MYELOMA
     Dosage: 10 MG, 1 IN 1 D, PO; 5 MG, 1 IN 1 D, PO; 1.6667 MG, 1 IN 3  D, PO
     Route: 048
     Dates: start: 20060201, end: 20060101
  2. REVLIMID [Suspect]
     Indication: MULTIPLE MYELOMA
     Dosage: 10 MG, 1 IN 1 D, PO; 5 MG, 1 IN 1 D, PO; 1.6667 MG, 1 IN 3  D, PO
     Route: 048
     Dates: start: 20080701
  3. REVLIMID [Suspect]
     Indication: MULTIPLE MYELOMA
     Dosage: 10 MG, 1 IN 1 D, PO; 5 MG, 1 IN 1 D, PO; 1.6667 MG, 1 IN 3  D, PO
     Route: 048
     Dates: start: 20060801, end: 20080101

REACTIONS (1)
  - GASTROENTERITIS [None]
